FAERS Safety Report 4834243-X (Version None)
Quarter: 2005Q4

REPORT INFORMATION
  Report Type: 
  Country: None (occurrence: None)
  Receive Date: 20051122
  Receipt Date: 20050902
  Transmission Date: 20060501
  Serious: Yes (Hospitalization, Disabling)
  Sender: FDA-Public Use
  Company Number: US-MERCK-0509USA00581

PATIENT
  Age: 60 Year
  Sex: Male
  Weight: 77 kg

DRUGS (3)
  1. VIOXX [Suspect]
     Indication: CARPAL TUNNEL SYNDROME
     Route: 048
     Dates: start: 20010101, end: 20040301
  2. TYLENOL W/ CODEINE [Concomitant]
     Indication: PAIN
     Route: 065
  3. SOMA [Concomitant]
     Indication: MUSCLE RELAXANT THERAPY
     Route: 065

REACTIONS (11)
  - ANAEMIA POSTOPERATIVE [None]
  - ANGINA UNSTABLE [None]
  - ARTHROPATHY [None]
  - CORONARY ARTERY DISEASE [None]
  - DEPRESSION [None]
  - ERECTILE DYSFUNCTION [None]
  - EYE INFECTION [None]
  - HYPERLIPIDAEMIA [None]
  - NERVOUS SYSTEM DISORDER [None]
  - PNEUMONIA [None]
  - UPPER RESPIRATORY TRACT INFECTION [None]
